FAERS Safety Report 4849003-3 (Version None)
Quarter: 2005Q4

REPORT INFORMATION
  Report Type: 
  Country: None (occurrence: None)
  Receive Date: 20051122
  Receipt Date: 20051018
  Transmission Date: 20060501
  Serious: Yes (Life-Threatening, Hospitalization)
  Sender: FDA-Public Use
  Company Number: US-JNJFOC-20050805427

PATIENT
  Age: 60 Year
  Sex: Male
  Weight: 127.0072 kg

DRUGS (3)
  1. RISPERDAL [Suspect]
     Indication: BIPOLAR DISORDER
     Dosage: 25 MG, INTRAMUSCULAR
     Route: 030
     Dates: start: 20050630
  2. RISPERDAL [Suspect]
     Indication: SCHIZOPHRENIA
     Dosage: 25 MG, INTRAMUSCULAR
     Route: 030
     Dates: start: 20050630
  3. LAMICTAL [Concomitant]

REACTIONS (2)
  - PYREXIA [None]
  - SCHIZOPHRENIA [None]
